FAERS Safety Report 4279401-0 (Version None)
Quarter: 2004Q1

REPORT INFORMATION
  Report Type: 
  Country: None (occurrence: None)
  Receive Date: 20040127
  Receipt Date: 20030130
  Transmission Date: 20041129
  Serious: No
  Sender: FDA-Public Use
  Company Number: US-BRISTOL-MYERS SQUIBB COMPANY-12172482

PATIENT
  Age: 84 Year
  Sex: Male
  Weight: 66 kg

DRUGS (5)
  1. DOVONEX [Suspect]
     Indication: SKIN DISORDER
     Route: 061
     Dates: start: 20021001, end: 20030307
  2. VERAPAMIL [Concomitant]
  3. COUMADIN [Concomitant]
  4. HYDREA [Concomitant]
  5. PREVACID [Concomitant]

REACTIONS (2)
  - DIZZINESS [None]
  - PRURITUS [None]
